FAERS Safety Report 8333950-4 (Version None)
Quarter: 2012Q2

REPORT INFORMATION
  Report Type: 
  Country: None (occurrence: None)
  Receive Date: 20120503
  Receipt Date: 20120424
  Transmission Date: 20120825
  Serious: Yes (Life-Threatening, Hospitalization)
  Sender: FDA-Public Use
  Company Number: NL-MEDIMMUNE-MEDI-0013715

PATIENT
  Sex: Female
  Weight: 4 kg

DRUGS (3)
  1. SYNAGIS [Suspect]
     Indication: PREMATURE BABY
     Route: 030
     Dates: start: 20110913, end: 20110913
  2. SYNAGIS [Suspect]
     Route: 030
     Dates: start: 20111011
  3. FERRO [Concomitant]

REACTIONS (3)
  - PYREXIA [None]
  - RESPIRATORY ARREST [None]
  - LOCALISED INFECTION [None]
